FAERS Safety Report 13742876 (Version 2)
Quarter: 2017Q3

REPORT INFORMATION
  Report Type: Spontaneous
  Country: US (occurrence: US)
  Receive Date: 20170711
  Receipt Date: 20170808
  Transmission Date: 20171127
  Serious: No
  Sender: FDA-Public Use
  Company Number: US-TEVA-787134ACC

PATIENT
  Sex: Female

DRUGS (1)
  1. PARAGARD T 380A [Suspect]
     Active Substance: COPPER
     Dates: start: 20091109, end: 20170630

REACTIONS (3)
  - Device breakage [Unknown]
  - Embedded device [Recovered/Resolved with Sequelae]
  - Complication associated with device [Unknown]

NARRATIVE: CASE EVENT DATE: 20170629
